FAERS Safety Report 11159243 (Version 3)
Quarter: 2015Q3

REPORT INFORMATION
  Report Type: Report from Study
  Country: CA (occurrence: CA)
  Receive Date: 20150603
  Receipt Date: 20150803
  Transmission Date: 20151125
  Serious: Yes (Death, Hospitalization)
  Sender: FDA-Public Use
  Company Number: CA-ABBVIE-15K-028-1390795-00

PATIENT
  Age: 58 Year
  Sex: Female

DRUGS (1)
  1. HUMIRA [Suspect]
     Active Substance: ADALIMUMAB
     Indication: COLITIS ULCERATIVE
     Route: 058
     Dates: start: 20150126

REACTIONS (12)
  - Renal vascular thrombosis [Not Recovered/Not Resolved]
  - Thrombosis [Not Recovered/Not Resolved]
  - Dyspepsia [Recovered/Resolved]
  - Diaphragmalgia [Unknown]
  - Aortic thrombosis [Not Recovered/Not Resolved]
  - Renal pain [Recovered/Resolved]
  - Fatigue [Not Recovered/Not Resolved]
  - Urinary tract infection [Unknown]
  - Asthenia [Unknown]
  - Hospitalisation [Unknown]
  - Death [Fatal]
  - Embolism [Not Recovered/Not Resolved]

NARRATIVE: CASE EVENT DATE: 2015
